FAERS Safety Report 6604542-X (Version None)
Quarter: 2010Q1

REPORT INFORMATION
  Report Type: 
  Country: None (occurrence: None)
  Receive Date: 20100226
  Receipt Date: 20091118
  Transmission Date: 20100710
  Serious: No
  Sender: FDA-Public Use
  Company Number: A0817755A

PATIENT
  Age: 49 Year
  Sex: Female

DRUGS (13)
  1. LAMICTAL CD [Suspect]
     Indication: BIPOLAR DISORDER
     Dosage: 100MG PER DAY
     Route: 048
     Dates: start: 20091013, end: 20091117
  2. KLONOPIN [Concomitant]
  3. REMERON [Concomitant]
  4. SEROQUEL [Concomitant]
  5. AMRIX [Concomitant]
  6. VITAMIN D [Concomitant]
  7. CALCIUM [Concomitant]
  8. FLAX SEED OIL [Concomitant]
  9. MAGNESIUM [Concomitant]
  10. MULTI-VITAMIN [Concomitant]
  11. PULMICORT [Concomitant]
  12. FLUTICASONE PROPIONATE [Concomitant]
  13. PEPCID [Concomitant]

REACTIONS (1)
  - INSOMNIA [None]
